FAERS Safety Report 4944703-9 (Version None)
Quarter: 2006Q1

REPORT INFORMATION
  Report Type: 
  Country: None (occurrence: None)
  Receive Date: 20060315
  Receipt Date: 20060307
  Transmission Date: 20060701
  Serious: Yes (Other)
  Sender: FDA-Public Use
  Company Number: US-ABBOTT-06P-163-0327456-00

PATIENT
  Age: 77 Year
  Sex: Male

DRUGS (2)
  1. CLARITHROMYCIN 500MG TABLETS [Suspect]
     Indication: CELLULITIS
     Route: 048
     Dates: start: 19950713, end: 19950718
  2. CEFTAZIDIME [Concomitant]
     Indication: CELLULITIS
     Route: 042
     Dates: start: 19950713, end: 19950716

REACTIONS (4)
  - AGGRESSION [None]
  - CONFUSIONAL STATE [None]
  - HALLUCINATION [None]
  - MANIA [None]
